FAERS Safety Report 5590479-4 (Version None)
Quarter: 2008Q1

REPORT INFORMATION
  Report Type: 
  Country: None (occurrence: None)
  Receive Date: 20080114
  Receipt Date: 20071031
  Transmission Date: 20080703
  Serious: No
  Sender: FDA-Public Use
  Company Number: US-BOEHRINGER INGELHEIM PHARMACEUTICALS, INC.-2007-BP-26451BP

PATIENT
  Sex: Male

DRUGS (3)
  1. MIRAPEX [Suspect]
     Indication: PARKINSON'S DISEASE
     Route: 048
     Dates: start: 19980101, end: 20030801
  2. SINEMET [Concomitant]
     Indication: PARKINSON'S DISEASE
  3. OTHER UNSPECIFIED MEDICATIONS [Concomitant]

REACTIONS (1)
  - PATHOLOGICAL GAMBLING [None]
